FAERS Safety Report 15150449 (Version 1)
Quarter: 2018Q3

REPORT INFORMATION
  Report Type: Spontaneous
  Country: FR (occurrence: FR)
  Receive Date: 20180716
  Receipt Date: 20180716
  Transmission Date: 20181010
  Serious: Yes (Hospitalization)
  Sender: FDA-Public Use
  Company Number: FR-ASTRAZENECA-2018SE89144

PATIENT
  Age: 67 Year
  Sex: Female
  Weight: 55.8 kg

DRUGS (6)
  1. IMOVANE [Suspect]
     Active Substance: ZOPICLONE
     Indication: INSOMNIA
     Route: 048
     Dates: start: 2017
  2. PERINDOPRIL [Concomitant]
     Active Substance: PERINDOPRIL
  3. XEROQUEL LP [Suspect]
     Active Substance: QUETIAPINE FUMARATE
     Indication: DELIRIUM
     Route: 048
     Dates: start: 2017, end: 201805
  4. THERALENE [Suspect]
     Active Substance: TRIMEPRAZINE
     Indication: DEPRESSION
     Route: 048
     Dates: start: 2017, end: 20180524
  5. VALIUM [Suspect]
     Active Substance: DIAZEPAM
     Indication: DEPRESSION
     Route: 048
     Dates: start: 2017
  6. CLOPIDOGREL [Concomitant]
     Active Substance: CLOPIDOGREL BISULFATE

REACTIONS (2)
  - Apathy [Recovered/Resolved]
  - Extrapyramidal disorder [Recovered/Resolved]

NARRATIVE: CASE EVENT DATE: 201802
